FAERS Safety Report 5640808-8 (Version None)
Quarter: 2008Q1

REPORT INFORMATION
  Report Type: 
  Country: None (occurrence: None)
  Receive Date: 20080227
  Receipt Date: 20080219
  Transmission Date: 20080703
  Serious: Yes (Other)
  Sender: FDA-Public Use
  Company Number: B0508547A

PATIENT
  Age: 76 Year
  Sex: Male

DRUGS (1)
  1. PAROXETINE HCL [Suspect]
     Indication: DEPRESSION
     Route: 065

REACTIONS (6)
  - ALTERED STATE OF CONSCIOUSNESS [None]
  - CONVULSION [None]
  - ELECTROENCEPHALOGRAM ABNORMAL [None]
  - MOTOR DYSFUNCTION [None]
  - STUPOR [None]
  - TREMOR [None]
